FAERS Safety Report 9952834 (Version 2)
Quarter: 2014Q1

REPORT INFORMATION
  Report Type: Spontaneous
  Country: JP (occurrence: JP)
  Receive Date: 20140304
  Receipt Date: 20140320
  Transmission Date: 20141002
  Serious: Yes (Hospitalization)
  Sender: FDA-Public Use
  Company Number: JP-ELI_LILLY_AND_COMPANY-JP201402008726

PATIENT
  Age: 58 Year
  Sex: Male

DRUGS (4)
  1. ALIMTA [Suspect]
     Indication: PLEURAL MESOTHELIOMA MALIGNANT
     Dosage: 700 MG, OTHER
     Route: 042
     Dates: start: 20101210, end: 20140110
  2. CISPLATIN [Concomitant]
     Indication: PLEURAL MESOTHELIOMA MALIGNANT
     Dosage: 100 MG, UNK
     Route: 042
     Dates: start: 20101210, end: 20110201
  3. FRESMIN S [Concomitant]
     Dosage: 1 MG, UNK
     Route: 030
  4. PANVITAN                           /00466101/ [Concomitant]
     Dosage: 1 MG, UNK
     Route: 048

REACTIONS (1)
  - Chronic myeloid leukaemia [Not Recovered/Not Resolved]
